FAERS Safety Report 4862895-7 (Version None)
Quarter: 2005Q4

REPORT INFORMATION
  Report Type: 
  Country: None (occurrence: None)
  Receive Date: 20051129
  Receipt Date: 20050822
  Transmission Date: 20060501
  Serious: No
  Sender: FDA-Public Use
  Company Number: WAES 0508USA03593

PATIENT
  Age: 67 Year
  Sex: Female

DRUGS (17)
  1. ZETIA [Suspect]
     Indication: BLOOD CHOLESTEROL INCREASED
     Dosage: 10 MG/DAILY/PO
     Route: 048
  2. ATROVENT [Concomitant]
  3. LORATADINE [Concomitant]
  4. COZAAR [Concomitant]
  5. HUMULIN N [Concomitant]
  6. LANOXIN [Concomitant]
  7. LASIX [Concomitant]
  8. NITRO [Concomitant]
  9. NITROLINGUAL [Concomitant]
  10. PEPCID [Concomitant]
  11. SYNTHROID [Concomitant]
  12. TESSALON [Concomitant]
  13. VICODIN [Concomitant]
  14. XANAX [Concomitant]
  15. ZOLOFT [Concomitant]
  16. HYDROCODONE HYDROCHLORIDE [Concomitant]
  17. PREDNISONE [Concomitant]

REACTIONS (1)
  - HYPOAESTHESIA [None]
